FAERS Safety Report 10144671 (Version 1)
Quarter: 2014Q2

REPORT INFORMATION
  Report Type: Spontaneous
  Country: US (occurrence: US)
  Receive Date: 20140430
  Receipt Date: 20140430
  Transmission Date: 20141212
  Serious: No
  Sender: FDA-Public Use
  Company Number: US-SANOFI-AVENTIS-2013SA082611

PATIENT
  Age: 80 Year
  Sex: Female

DRUGS (3)
  1. LOVENOX [Suspect]
     Indication: SWELLING
     Route: 065
     Dates: start: 20130806
  2. COUMADIN [Suspect]
     Route: 065
  3. IBUPROFEN [Suspect]
     Route: 065

REACTIONS (4)
  - International normalised ratio increased [Unknown]
  - Vein disorder [Unknown]
  - Uterine haemorrhage [Unknown]
  - Drug dose omission [Unknown]
